FAERS Safety Report 8645690 (Version 3)
Quarter: 2012Q4

REPORT INFORMATION
  Report Type: 
  Country: US (occurrence: US)
  Receive Date: 20120702
  Receipt Date: 20121228
  Transmission Date: 20130627
  Serious: Yes (Hospitalization, Other)
  Sender: FDA-Public Use
  Company Number: US-ASTRAZENECA-2012SE42644

PATIENT
  Age: 60 Year
  Sex: Female

DRUGS (7)
  1. NEXIUM [Suspect]
     Route: 048
  2. SEROQUEL [Suspect]
     Route: 048
  3. SEROQUEL [Suspect]
     Route: 048
  4. HALDOL [Suspect]
     Route: 065
  5. ANTIBIOTIC [Suspect]
     Route: 065
  6. LORATADINE [Concomitant]
  7. WELLBUTRIN [Concomitant]

REACTIONS (16)
  - Blood potassium decreased [Unknown]
  - Posture abnormal [Unknown]
  - Malaise [Unknown]
  - Blood sodium decreased [Unknown]
  - Drooling [Unknown]
  - Gastroenteritis viral [Unknown]
  - Oesophageal pain [Unknown]
  - Weight decreased [Unknown]
  - Mental impairment [Unknown]
  - Sinusitis [Unknown]
  - Feeling abnormal [Unknown]
  - Headache [Unknown]
  - Condition aggravated [Unknown]
  - Vomiting [Unknown]
  - Vomiting [Unknown]
  - Drug dose omission [Unknown]
